FAERS Safety Report 14607065 (Version 1)
Quarter: 2018Q1

REPORT INFORMATION
  Report Type: Spontaneous
  Country: US (occurrence: US)
  Receive Date: 20180306
  Receipt Date: 20180306
  Transmission Date: 20180509
  Serious: No
  Sender: FDA-Public Use
  Company Number: None

PATIENT
  Age: 64 Year
  Sex: Male

DRUGS (15)
  1. CIPROFLOXACIN 500MG TAB [Suspect]
     Active Substance: CIPROFLOXACIN
     Indication: PROSTATITIS
     Dosage: 60 PILLS 2X DAILY/30 DAYS BY MOUTH
     Route: 048
     Dates: start: 20161117, end: 20161217
  2. LOSARTAN. [Concomitant]
     Active Substance: LOSARTAN
  3. OMEPRAZOLE. [Concomitant]
     Active Substance: OMEPRAZOLE
  4. MULTI-VITAMINS [Concomitant]
  5. FISH OIL [Concomitant]
     Active Substance: FISH OIL
  6. ACIDOPHILUS [Concomitant]
     Active Substance: LACTOBACILLUS ACIDOPHILUS
  7. ATORVASTATIN [Concomitant]
     Active Substance: ATORVASTATIN
  8. APPLE CIDER VINEGAR [Concomitant]
     Active Substance: APPLE CIDER VINEGAR
  9. COCONUT OIL [Concomitant]
     Active Substance: COCONUT OIL
  10. FLAX OIL [Concomitant]
  11. CLONAZEPAM. [Concomitant]
     Active Substance: CLONAZEPAM
  12. D-3 [Concomitant]
     Active Substance: CHOLECALCIFEROL
  13. DIVALPROEX [Concomitant]
     Active Substance: DIVALPROEX SODIUM
  14. RISPERIDONE. [Concomitant]
     Active Substance: RISPERIDONE
  15. VITAMIN C [Concomitant]
     Active Substance: ASCORBIC ACID

REACTIONS (1)
  - Feeling abnormal [None]

NARRATIVE: CASE EVENT DATE: 20161117
